FAERS Safety Report 15803022 (Version 1)
Quarter: 2019Q1

REPORT INFORMATION
  Report Type: Spontaneous
  Country: US (occurrence: US)
  Receive Date: 20190109
  Receipt Date: 20190109
  Transmission Date: 20190417
  Serious: No
  Sender: FDA-Public Use
  Company Number: US-BAYER-2019-000262

PATIENT
  Age: 36 Year
  Sex: Female

DRUGS (4)
  1. MIRENA [Suspect]
     Active Substance: LEVONORGESTREL
     Indication: POLYCYSTIC OVARIES
  2. MIRENA [Suspect]
     Active Substance: LEVONORGESTREL
     Indication: ENDOMETRIOSIS
     Dosage: 20 MCG/24HR, CONT
     Route: 015
     Dates: start: 201705
  3. MIRENA [Suspect]
     Active Substance: LEVONORGESTREL
     Indication: ENDOMETRIOSIS
  4. MIRENA [Suspect]
     Active Substance: LEVONORGESTREL
     Indication: POLYCYSTIC OVARIES

REACTIONS (8)
  - Endometriosis [Not Recovered/Not Resolved]
  - Drug ineffective for unapproved indication [None]
  - Breast cyst [Recovered/Resolved]
  - Abdominal pain lower [Not Recovered/Not Resolved]
  - Product use in unapproved indication [None]
  - Hormone level abnormal [Not Recovered/Not Resolved]
  - Vaginal haemorrhage [Not Recovered/Not Resolved]
  - Off label use [None]

NARRATIVE: CASE EVENT DATE: 201705
